FAERS Safety Report 10742646 (Version 2)
Quarter: 2015Q1

REPORT INFORMATION
  Report Type: Spontaneous
  Country: DE (occurrence: DE)
  Receive Date: 20150127
  Receipt Date: 20150225
  Transmission Date: 20150721
  Serious: Yes (Other)
  Sender: FDA-Public Use
  Company Number: DE-TEVA-535676GER

PATIENT
  Age: 77 Year
  Sex: Female

DRUGS (1)
  1. BISOPROLOL-RATIOPHARM 2,5 MG TABLETTEN [Suspect]
     Active Substance: BISOPROLOL
     Indication: HYPERTENSION
     Route: 048

REACTIONS (9)
  - Nasal disorder [Unknown]
  - Disturbance in attention [Unknown]
  - Mental disorder [Unknown]
  - Paralysis [Unknown]
  - Epistaxis [Unknown]
  - Product substitution issue [Unknown]
  - Fatigue [Unknown]
  - Productive cough [Unknown]
  - Headache [Unknown]

NARRATIVE: CASE EVENT DATE: 20141201
